FAERS Safety Report 20903216 (Version 2)
Quarter: 2022Q3

REPORT INFORMATION
  Report Type: Spontaneous
  Country: JP (occurrence: JP)
  Receive Date: 20220601
  Receipt Date: 20220720
  Transmission Date: 20221026
  Serious: Yes (Death, Hospitalization, Other)
  Sender: FDA-Public Use
  Company Number: JP-CHUGAI-2022010112

PATIENT
  Age: 65 Year
  Sex: Male

DRUGS (14)
  1. VEKLURY [Suspect]
     Active Substance: REMDESIVIR
     Indication: COVID-19
     Dosage: 200 MG, QD
     Route: 041
     Dates: start: 20220221, end: 20220221
  2. VEKLURY [Suspect]
     Active Substance: REMDESIVIR
     Dosage: 100 MG, QD
     Route: 041
     Dates: start: 20220222, end: 20220225
  3. ACTEMRA [Suspect]
     Active Substance: TOCILIZUMAB
     Indication: COVID-19 pneumonia
     Dosage: 500 MG, QD
     Route: 041
     Dates: start: 20220222
  4. SOLU-MEDROL [Suspect]
     Active Substance: METHYLPREDNISOLONE SODIUM SUCCINATE
     Indication: COVID-19
     Dosage: 1000 MG, QD
     Route: 041
     Dates: start: 20220221, end: 20220222
  5. SOLU-MEDROL [Suspect]
     Active Substance: METHYLPREDNISOLONE SODIUM SUCCINATE
     Dosage: 500 MG, QD
     Route: 041
     Dates: start: 20220223, end: 20220224
  6. SOLU-MEDROL [Suspect]
     Active Substance: METHYLPREDNISOLONE SODIUM SUCCINATE
     Dosage: 200 MG, QD
     Route: 041
     Dates: start: 20220225
  7. BISOPROLOL FUMARATE [Concomitant]
     Active Substance: BISOPROLOL FUMARATE
     Dosage: 0.63 MG, BID
     Route: 048
     Dates: start: 20220221, end: 20220224
  8. FOSRENOL [Concomitant]
     Active Substance: LANTHANUM CARBONATE
     Dosage: 500 MG, BID
     Route: 048
     Dates: start: 20220221, end: 20220224
  9. SOLDEM 3PG [Concomitant]
     Dosage: 500 ML, QD
     Route: 041
     Dates: start: 20220221, end: 20220303
  10. CARBOCYSTEINE [Concomitant]
     Active Substance: CARBOCYSTEINE
     Dosage: 500 MG, BID
     Route: 048
     Dates: start: 20220221, end: 20220224
  11. FERRIC HYDROXIDE [Concomitant]
     Active Substance: FERRIC HYDROXIDE
     Dosage: 500 MG, Q8H
     Route: 048
     Dates: start: 20220221, end: 20220224
  12. ASPIRIN [Concomitant]
     Active Substance: ASPIRIN
     Dosage: 100 MG, QD
     Route: 048
     Dates: start: 20220221, end: 20220224
  13. LANSOPRAZOLE [Concomitant]
     Active Substance: LANSOPRAZOLE
     Dosage: 15 MG, QD
     Route: 048
     Dates: start: 20220221, end: 20220224
  14. MIYA-BM [Concomitant]
     Active Substance: CLOSTRIDIUM BUTYRICUM SPORES STRAIN M-55
     Dosage: 2 DOSAGE FORM, Q8H
     Route: 048
     Dates: start: 20220221, end: 20220224

REACTIONS (3)
  - Respiratory failure [Fatal]
  - Pulmonary congestion [Fatal]
  - Pancreatitis acute [Recovered/Resolved]

NARRATIVE: CASE EVENT DATE: 20220225
